FAERS Safety Report 8260639-2 (Version None)
Quarter: 2012Q2

REPORT INFORMATION
  Report Type: 
  Country: None (occurrence: None)
  Receive Date: 20120405
  Receipt Date: 20120322
  Transmission Date: 20120825
  Serious: Yes (Death, Hospitalization)
  Sender: FDA-Public Use
  Company Number: CN-PAR PHARMACEUTICAL, INC-2012SCPR004276

PATIENT

DRUGS (12)
  1. ITRACONAZOLE [Concomitant]
     Indication: ANTIFUNGAL TREATMENT
     Dosage: 100 MG, QD
     Route: 048
  2. AMPHOTERICIN B [Concomitant]
     Dosage: UNK, UNKNOWN
     Route: 061
  3. INSULIN [Concomitant]
     Indication: BLOOD GLUCOSE INCREASED
     Dosage: UNK, UNKNOWN
     Route: 065
  4. AMPHOTERICIN B [Concomitant]
     Indication: ANTIFUNGAL TREATMENT
     Dosage: CUMULATIVE DOSE OF 1777 MG
     Route: 048
  5. PIDOTIMOD [Concomitant]
     Indication: IMMUNE ENHANCEMENT THERAPY
     Dosage: UNK, UNKNOWN
     Route: 065
  6. DEXAMETHASONE [Suspect]
     Indication: PRODUCT USED FOR UNKNOWN INDICATION
     Dosage: 2 MG, / DAY
     Route: 065
  7. ALBUMIN (HUMAN) [Concomitant]
     Indication: NUTRITIONAL SUPPORT
     Dosage: UNK, UNKNOWN
     Route: 065
  8. METOPROLOL TARTRATE [Concomitant]
     Indication: HYPERTENSION
     Dosage: UNK, UNKNOWN
     Route: 065
  9. ALLOPURINOL [Concomitant]
     Indication: PRODUCT USED FOR UNKNOWN INDICATION
     Dosage: 0.1 G, BID
     Route: 065
  10. NIFEDIPINE [Concomitant]
     Indication: HYPERTENSION
     Dosage: UNK, UNKNOWN
     Route: 065
  11. NITROGLYCERIN [Concomitant]
     Indication: HYPERTENSION
     Dosage: UNK, UNKNOWN
     Route: 065
  12. THYMOSIN [Concomitant]
     Indication: IMMUNE ENHANCEMENT THERAPY
     Dosage: UNK, UNKNOWN
     Route: 065

REACTIONS (4)
  - ANGINA PECTORIS [None]
  - PULMONARY HAEMORRHAGE [None]
  - DEATH [None]
  - ACUTE CORONARY SYNDROME [None]
